FAERS Safety Report 10788716 (Version 1)
Quarter: 2015Q1

REPORT INFORMATION
  Report Type: Spontaneous
  Country: CH (occurrence: None)
  Receive Date: 20150210
  Receipt Date: 20150210
  Transmission Date: 20150721
  Serious: Yes (Other)
  Sender: FDA-Public Use
  Company Number: OTH-LIT-1999002

PATIENT
  Sex: Male

DRUGS (2)
  1. SODIUM BENZOATE [Concomitant]
     Active Substance: SODIUM BENZOATE
  2. CARBAGLU [Suspect]
     Active Substance: CARGLUMIC ACID
     Indication: HYPERAMMONAEMIA

REACTIONS (14)
  - Liver disorder [None]
  - Ammonia increased [None]
  - Toxicity to various agents [None]
  - Decreased appetite [None]
  - Hypotonia [None]
  - Vomiting [None]
  - Coma [None]
  - Seizure [None]
  - Sympathomimetic effect [None]
  - Off label use [None]
  - Adverse event [None]
  - Hyperammonaemia [None]
  - Transaminases increased [None]
  - Overdose [None]
